FAERS Safety Report 6418940-0 (Version None)
Quarter: 2009Q4

REPORT INFORMATION
  Report Type: 
  Country: None (occurrence: None)
  Receive Date: 20091029
  Receipt Date: 20091019
  Transmission Date: 20100525
  Serious: Yes (Other)
  Sender: FDA-Public Use
  Company Number: GB-JNJFOC-20091006094

PATIENT
  Age: 77 Year

DRUGS (2)
  1. REMICADE [Suspect]
     Indication: RHEUMATOID ARTHRITIS
     Route: 042
     Dates: start: 20020915, end: 20051207
  2. TACROLIMUS [Concomitant]

REACTIONS (1)
  - BASAL CELL CARCINOMA [None]
